FAERS Safety Report 8675989 (Version 2)
Quarter: 2012Q4

REPORT INFORMATION
  Report Type: 
  Country: NO (occurrence: NO)
  Receive Date: 20120720
  Receipt Date: 20121003
  Transmission Date: 20130627
  Serious: Yes (Other)
  Sender: FDA-Public Use
  Company Number: PHHY2012NO061667

PATIENT
  Age: 61 None
  Sex: Female

DRUGS (5)
  1. ZOMETA [Suspect]
     Indication: HYPERCALCAEMIA
     Dates: start: 2003, end: 2006
  2. ZOMETA [Suspect]
     Indication: OSTEOPOROSIS
  3. ZOMETA [Suspect]
     Indication: BREAST CANCER STAGE IV
  4. AROMASIN [Concomitant]
  5. FASLODEX [Concomitant]

REACTIONS (4)
  - Osteonecrosis of jaw [Not Recovered/Not Resolved]
  - Exposed bone in jaw [Unknown]
  - Impaired healing [Unknown]
  - Bone development abnormal [Unknown]
